FAERS Safety Report 15849602 (Version 1)
Quarter: 2019Q1

REPORT INFORMATION
  Report Type: Report from Study
  Country: JP (occurrence: JP)
  Receive Date: 20190121
  Receipt Date: 20190121
  Transmission Date: 20190417
  Serious: Yes (Other)
  Sender: FDA-Public Use
  Company Number: JP-PFIZER INC-2019020249

PATIENT

DRUGS (3)
  1. PACLITAXEL. [Suspect]
     Active Substance: PACLITAXEL
     Indication: NON-SMALL CELL LUNG CANCER
     Dosage: 150 MG/M2, CYCLIC (INTRAVENOUS INFUSION ON DAY 1, REPEATED EVERY FOUR WEEKS)
     Route: 042
  2. IRINOTECAN HCL [Suspect]
     Active Substance: IRINOTECAN HYDROCHLORIDE
     Indication: NON-SMALL CELL LUNG CANCER
     Dosage: 50 MG/M2, CYCLIC (BY INTRAVENOUS INFUSION ON DAY 1 AND 8, REPEATED EVERY 4 WEEKS)
     Route: 042
  3. BEVACIZUMAB. [Suspect]
     Active Substance: BEVACIZUMAB
     Indication: NON-SMALL CELL LUNG CANCER
     Dosage: 15 MG/KG, CYCLIC (BY INTRAVENOUS INFUSION ON DAY 1, REPEATED EVERY FOUR WEEKS)
     Route: 042

REACTIONS (1)
  - Thrombosis [Unknown]
